FAERS Safety Report 6130026-1 (Version None)
Quarter: 2009Q1

REPORT INFORMATION
  Report Type: 
  Country: None (occurrence: None)
  Receive Date: 20090323
  Receipt Date: 20090323
  Transmission Date: 20090719
  Serious: Yes (Other)
  Sender: FDA-Public Use
  Company Number: None

PATIENT
  Age: 42 Year
  Sex: Female
  Weight: 56.6996 kg

DRUGS (3)
  1. NEULASTA [Suspect]
  2. . [Concomitant]
  3. PROCRIT [Concomitant]

REACTIONS (6)
  - ARTHRALGIA [None]
  - CRYING [None]
  - DECREASED ACTIVITY [None]
  - FATIGUE [None]
  - HEADACHE [None]
  - PAIN [None]
